FAERS Safety Report 6171744-9 (Version None)
Quarter: 2009Q2

REPORT INFORMATION
  Report Type: 
  Country: None (occurrence: None)
  Receive Date: 20090427
  Receipt Date: 20090427
  Transmission Date: 20091009
  Serious: Yes (Other)
  Sender: FDA-Public Use
  Company Number: None

PATIENT
  Sex: Female
  Weight: 52.1637 kg

DRUGS (2)
  1. TOPIRAMATE [Suspect]
     Indication: MIGRAINE PROPHYLAXIS
     Dosage: 50MG TABLET TWICE A DAY PO
     Route: 048
     Dates: start: 20090402, end: 20090407
  2. TOPIRAMATE [Suspect]
     Indication: MIGRAINE PROPHYLAXIS
     Dosage: 50MG TABLET TWICE A DAY PO
     Route: 048
     Dates: start: 20090414, end: 20090419

REACTIONS (2)
  - NIGHTMARE [None]
  - PRODUCT SUBSTITUTION ISSUE [None]
